FAERS Safety Report 16661854 (Version 1)
Quarter: 2019Q3

REPORT INFORMATION
  Report Type: Spontaneous
  Country: FR (occurrence: FR)
  Receive Date: 20190802
  Receipt Date: 20190802
  Transmission Date: 20191004
  Serious: Yes (Hospitalization)
  Sender: FDA-Public Use
  Company Number: PHHY2019FR177862

PATIENT
  Age: 96 Year
  Sex: Female

DRUGS (8)
  1. CLIMAXOL [Concomitant]
     Indication: PRODUCT USED FOR UNKNOWN INDICATION
     Route: 065
  2. STRESAM [Concomitant]
     Active Substance: ETIFOXINE
     Indication: PRODUCT USED FOR UNKNOWN INDICATION
     Route: 065
  3. COVERSYL [Suspect]
     Active Substance: PERINDOPRIL
     Indication: BLOOD PRESSURE MANAGEMENT
     Dosage: 5 MG, QD (1 CP LE SOIR)
     Route: 048
     Dates: start: 201903, end: 20190701
  4. BETAHISTINE [Concomitant]
     Active Substance: BETAHISTINE
     Indication: PRODUCT USED FOR UNKNOWN INDICATION
     Route: 065
  5. DEBRIDAT [Concomitant]
     Active Substance: TRIMEBUTINE MALEATE
     Indication: PRODUCT USED FOR UNKNOWN INDICATION
     Route: 065
  6. ESIDREX [Suspect]
     Active Substance: HYDROCHLOROTHIAZIDE
     Indication: BLOOD PRESSURE MANAGEMENT
     Dosage: 12.5 MG, QD (1/2 CP LE MATIN)
     Route: 048
     Dates: start: 201903, end: 20190701
  7. HYPERIUM [Suspect]
     Active Substance: RILMENIDINE PHOSPHATE
     Indication: BLOOD PRESSURE MANAGEMENT
     Dosage: 1 MG, QD
     Route: 048
     Dates: start: 201903, end: 20190701
  8. DOLIPRANE [Concomitant]
     Active Substance: ACETAMINOPHEN
     Indication: PRODUCT USED FOR UNKNOWN INDICATION
     Route: 065

REACTIONS (4)
  - Hyponatraemia [Recovered/Resolved]
  - Hypertension [Recovering/Resolving]
  - Fall [Recovered/Resolved]
  - Vertigo [Recovered/Resolved]

NARRATIVE: CASE EVENT DATE: 201903
